FAERS Safety Report 5567439-2 (Version None)
Quarter: 2007Q4

REPORT INFORMATION
  Report Type: 
  Country: None (occurrence: None)
  Receive Date: 20071214
  Receipt Date: 20071205
  Transmission Date: 20080405
  Serious: Yes (Other)
  Sender: FDA-Public Use
  Company Number: 028-21880-07071569

PATIENT
  Age: 67 Year
  Sex: Male

DRUGS (6)
  1. REVLIMID [Suspect]
     Indication: MYELODYSPLASTIC SYNDROME
     Dosage: 10 MG, 1 IN 1 D, ORAL,10 MG,2 IN 1 D
     Route: 048
     Dates: start: 20070201, end: 20070201
  2. REVLIMID [Suspect]
     Indication: MYELODYSPLASTIC SYNDROME
     Dosage: 10 MG, 1 IN 1 D, ORAL,10 MG,2 IN 1 D
     Route: 048
     Dates: start: 20070301, end: 20070520
  3. REVLIMID [Suspect]
  4. REVLIMID [Suspect]
  5. OMEPRAZOLE [Concomitant]
  6. COUMADIN [Concomitant]

REACTIONS (2)
  - BIFASCICULAR BLOCK [None]
  - BRADYCARDIA [None]
